FAERS Safety Report 8852871 (Version 1)
Quarter: 2012Q4

REPORT INFORMATION
  Report Type: 
  Country: CA (occurrence: CA)
  Receive Date: 20121022
  Receipt Date: 20121022
  Transmission Date: 20130627
  Serious: Yes (Other)
  Sender: FDA-Public Use
  Company Number: PHHY2007CA011813

PATIENT

DRUGS (1)
  1. SANDOSTATIN LAR [Suspect]
     Dates: start: 20060115

REACTIONS (6)
  - Blood pressure decreased [Unknown]
  - Insomnia [Recovering/Resolving]
  - Hot flush [Recovering/Resolving]
  - Discomfort [Recovering/Resolving]
  - Fatigue [Unknown]
  - Heart rate decreased [Unknown]
